FAERS Safety Report 9058452 (Version 9)
Quarter: 2015Q1

REPORT INFORMATION
  Report Type: Spontaneous
  Country: US (occurrence: US)
  Receive Date: 20130131
  Receipt Date: 20150220
  Transmission Date: 20150721
  Serious: Yes (Death, Other)
  Sender: FDA-Public Use
  Company Number: US-CELGENEUS-163-21880-12121379

PATIENT
  Age: 74 Year
  Sex: Male
  Weight: 96.5 kg

DRUGS (45)
  1. ASPIRIN. [Concomitant]
     Active Substance: ASPIRIN
     Indication: PRODUCT USED FOR UNKNOWN INDICATION
     Route: 065
     Dates: start: 200006
  2. HYDRALAZINE [Concomitant]
     Active Substance: HYDRALAZINE HYDROCHLORIDE
     Indication: PRODUCT USED FOR UNKNOWN INDICATION
     Route: 065
     Dates: start: 20100910, end: 20130510
  3. AQUAPHOR [Concomitant]
     Active Substance: PETROLATUM
     Indication: PRODUCT USED FOR UNKNOWN INDICATION
     Route: 065
     Dates: start: 201101
  4. ATROVENT [Concomitant]
     Active Substance: IPRATROPIUM BROMIDE
     Route: 065
     Dates: start: 20130218, end: 20130218
  5. ZITHROMAX [Concomitant]
     Active Substance: AZITHROMYCIN DIHYDRATE
     Indication: ADVERSE EVENT
     Route: 065
     Dates: start: 20130203, end: 20130209
  6. TESSALON [Concomitant]
     Active Substance: BENZONATATE
     Indication: ADVERSE EVENT
     Route: 065
     Dates: start: 20130203, end: 20130227
  7. MOXIFLOXACIN [Concomitant]
     Active Substance: MOXIFLOXACIN
     Indication: ADVERSE EVENT
     Route: 065
     Dates: start: 20130209, end: 20130213
  8. SOLU-MEDROL [Concomitant]
     Active Substance: METHYLPREDNISOLONE SODIUM SUCCINATE
     Indication: ADVERSE EVENT
     Route: 065
     Dates: start: 20130218, end: 20130218
  9. PACKED RED BLOOD CELLS [Concomitant]
     Active Substance: HUMAN RED BLOOD CELL
     Indication: PRODUCT USED FOR UNKNOWN INDICATION
     Route: 065
     Dates: start: 20130404, end: 20130404
  10. TYLENOL [Concomitant]
     Active Substance: ACETAMINOPHEN
     Indication: ADVERSE EVENT
     Route: 065
     Dates: start: 20130512, end: 20130512
  11. WARFARIN [Concomitant]
     Active Substance: WARFARIN
     Indication: PRODUCT USED FOR UNKNOWN INDICATION
     Route: 065
     Dates: start: 20000620
  12. MUCINEX [Concomitant]
     Active Substance: GUAIFENESIN
     Indication: ADVERSE EVENT
     Route: 065
     Dates: start: 20130203, end: 20130204
  13. SODIUM CHLORIDE. [Concomitant]
     Active Substance: SODIUM CHLORIDE
     Indication: ADVERSE EVENT
     Route: 065
     Dates: start: 20130205, end: 20130207
  14. ROBITUSSIN AC [Concomitant]
     Indication: ADVERSE EVENT
     Route: 065
     Dates: start: 20130205, end: 20130403
  15. LASIX [Concomitant]
     Active Substance: FUROSEMIDE
     Route: 065
     Dates: start: 20130404, end: 20130404
  16. KLOR [Concomitant]
     Indication: ADVERSE EVENT
     Route: 065
     Dates: start: 20130207, end: 20130207
  17. LIPITOR [Concomitant]
     Active Substance: ATORVASTATIN CALCIUM
     Indication: ADVERSE EVENT
     Route: 065
     Dates: start: 20130510, end: 20130511
  18. MAGNESIUM CHLORIDE. [Concomitant]
     Active Substance: MAGNESIUM CHLORIDE
     Indication: PRODUCT USED FOR UNKNOWN INDICATION
     Route: 065
     Dates: start: 20130510, end: 20130512
  19. DEXAMETHASONE. [Suspect]
     Active Substance: DEXAMETHASONE
     Route: 041
     Dates: start: 20120817
  20. ALBUTEROL SULFATE. [Concomitant]
     Active Substance: ALBUTEROL SULFATE
     Route: 055
     Dates: start: 20130218, end: 20130218
  21. AUGMENTIN [Concomitant]
     Active Substance: AMOXICILLIN\CLAVULANATE POTASSIUM
     Indication: ADVERSE EVENT
     Route: 065
     Dates: start: 20130202, end: 20130203
  22. ATROVENT [Concomitant]
     Active Substance: IPRATROPIUM BROMIDE
     Indication: ADVERSE EVENT
     Route: 065
     Dates: start: 20130203, end: 20130204
  23. ACYCLOVIR. [Concomitant]
     Active Substance: ACYCLOVIR
     Indication: PRODUCT USED FOR UNKNOWN INDICATION
     Route: 065
     Dates: start: 20130404, end: 20130504
  24. LISINOPRIL. [Concomitant]
     Active Substance: LISINOPRIL
     Indication: ADVERSE EVENT
     Route: 065
     Dates: start: 20130510
  25. REVLIMID [Suspect]
     Active Substance: LENALIDOMIDE
     Indication: PLASMA CELL MYELOMA
     Route: 048
     Dates: start: 20120816, end: 20130320
  26. OMEPRAZOLE. [Concomitant]
     Active Substance: OMEPRAZOLE
     Indication: PRODUCT USED FOR UNKNOWN INDICATION
     Route: 065
     Dates: start: 20100907
  27. OCUVITE [Concomitant]
     Active Substance: VITAMINS
     Indication: PRODUCT USED FOR UNKNOWN INDICATION
     Route: 065
     Dates: start: 201101
  28. ALBUTEROL SULFATE. [Concomitant]
     Active Substance: ALBUTEROL SULFATE
     Indication: PRODUCT USED FOR UNKNOWN INDICATION
     Route: 065
     Dates: start: 20121107
  29. PLATELETS [Concomitant]
     Active Substance: HUMAN PLATELET, ALLOGENIC
     Indication: ADVERSE EVENT
     Route: 065
     Dates: start: 20130429, end: 20130429
  30. CARVEDILOL. [Concomitant]
     Active Substance: CARVEDILOL
     Indication: ADVERSE EVENT
     Route: 065
     Dates: start: 20130510
  31. POTASSIUM CHLORIDE. [Concomitant]
     Active Substance: POTASSIUM CHLORIDE
     Indication: PRODUCT USED FOR UNKNOWN INDICATION
     Route: 065
     Dates: start: 20130510, end: 20130512
  32. DEXAMETHASONE. [Suspect]
     Active Substance: DEXAMETHASONE
     Indication: PLASMA CELL MYELOMA
     Route: 048
     Dates: start: 20120816
  33. CENTRUM SILVER [Concomitant]
     Active Substance: VITAMINS
     Indication: PRODUCT USED FOR UNKNOWN INDICATION
     Route: 065
     Dates: start: 200301
  34. ROSUVASTATIN [Concomitant]
     Active Substance: ROSUVASTATIN
     Indication: PRODUCT USED FOR UNKNOWN INDICATION
     Route: 065
     Dates: start: 20061017
  35. PLATELETS [Concomitant]
     Active Substance: HUMAN PLATELET, ALLOGENIC
     Route: 065
     Dates: start: 20130509, end: 20130509
  36. ATENOLOL. [Concomitant]
     Active Substance: ATENOLOL
     Indication: PRODUCT USED FOR UNKNOWN INDICATION
     Route: 065
     Dates: start: 200005, end: 20130510
  37. BUDESONIDE. [Concomitant]
     Active Substance: BUDESONIDE
     Indication: ADVERSE EVENT
     Route: 065
     Dates: start: 20130205, end: 20130209
  38. POTASSIUM PHOSPHATE [Concomitant]
     Active Substance: POTASSIUM PHOSPHATE
     Indication: PRODUCT USED FOR UNKNOWN INDICATION
     Route: 065
     Dates: start: 20130322, end: 20130404
  39. ELOTUZUMAB [Suspect]
     Active Substance: ELOTUZUMAB
     Indication: PLASMA CELL MYELOMA
     Route: 041
     Dates: start: 20120817, end: 20130320
  40. ISOSORBIDE MONONITRATE. [Concomitant]
     Active Substance: ISOSORBIDE MONONITRATE
     Indication: PRODUCT USED FOR UNKNOWN INDICATION
     Route: 065
     Dates: start: 20100910, end: 20130510
  41. LASIX [Concomitant]
     Active Substance: FUROSEMIDE
     Indication: ADVERSE EVENT
     Route: 065
     Dates: start: 20130206, end: 20130206
  42. PREDNISONE. [Concomitant]
     Active Substance: PREDNISONE
     Indication: ADVERSE EVENT
     Route: 065
     Dates: start: 20130219, end: 20130221
  43. CEFTRIAXONE. [Concomitant]
     Active Substance: CEFTRIAXONE
     Indication: ADVERSE EVENT
     Route: 065
     Dates: start: 20130205, end: 20130209
  44. LASIX [Concomitant]
     Active Substance: FUROSEMIDE
     Route: 065
     Dates: start: 20130509, end: 20130510
  45. MAGNESIUM OXIDE. [Concomitant]
     Active Substance: MAGNESIUM OXIDE
     Indication: PRODUCT USED FOR UNKNOWN INDICATION
     Route: 065
     Dates: start: 20130322, end: 20130404

REACTIONS (1)
  - Basal cell carcinoma [Recovered/Resolved]

NARRATIVE: CASE EVENT DATE: 20121101
